FAERS Safety Report 20582898 (Version 1)
Quarter: 2022Q1

REPORT INFORMATION
  Report Type: Spontaneous
  Country: US (occurrence: None)
  Receive Date: 20220311
  Receipt Date: 20220311
  Transmission Date: 20220423
  Serious: Yes (Other)
  Sender: FDA-Public Use
  Company Number: 2022A105225

PATIENT
  Sex: Female

DRUGS (3)
  1. FASENRA [Suspect]
     Active Substance: BENRALIZUMAB
     Route: 058
  2. DUPIXENT [Suspect]
     Active Substance: DUPILUMAB
     Route: 065
  3. NUCALA [Suspect]
     Active Substance: MEPOLIZUMAB
     Route: 065

REACTIONS (4)
  - Oxygen saturation decreased [Unknown]
  - Drug hypersensitivity [Unknown]
  - Asthma [Unknown]
  - Product dose omission issue [Unknown]
